FAERS Safety Report 5285934-0 (Version None)
Quarter: 2007Q2

REPORT INFORMATION
  Report Type: 
  Country: None (occurrence: None)
  Receive Date: 20070404
  Receipt Date: 20070328
  Transmission Date: 20071010
  Serious: Yes (Disabling)
  Sender: FDA-Public Use
  Company Number: US-KINGPHARMUSA00001-K200700377

PATIENT

DRUGS (6)
  1. ALTACE [Suspect]
     Indication: ACUTE CORONARY SYNDROME
     Dosage: 2.5 MG, BID
     Route: 048
     Dates: start: 20070129
  2. NICORANDIL [Suspect]
     Indication: ANGINA PECTORIS
     Dosage: 20 MG, BID
     Route: 048
     Dates: start: 20030101, end: 20070301
  3. ASPIRIN [Concomitant]
     Dosage: 75 MG, UNK
     Route: 048
  4. ATORVASTATIN CALCIUM [Concomitant]
     Dosage: 20 MG, UNK
     Route: 048
  5. FUROSEMIDE [Concomitant]
     Dosage: 160 MG, UNK
     Route: 048
  6. ISOSORBIDE MONONITRATE [Concomitant]
     Indication: ANGINA PECTORIS
     Dosage: 90 MG, UNK
     Route: 048

REACTIONS (1)
  - MOUTH ULCERATION [None]
